FAERS Safety Report 15390153 (Version 1)
Quarter: 2018Q3

REPORT INFORMATION
  Report Type: Spontaneous
  Country: TR (occurrence: TR)
  Receive Date: 20180917
  Receipt Date: 20180917
  Transmission Date: 20181010
  Serious: Yes (Hospitalization)
  Sender: FDA-Public Use
  Company Number: TR-TEVA-2018-TR-955275

PATIENT
  Sex: Male

DRUGS (1)
  1. TEVAGRASTIM [Suspect]
     Active Substance: FILGRASTIM
     Indication: NEUTROPENIA
     Dosage: TEVAGRASTIM 30 MIU/0.5 ML
     Route: 058
     Dates: start: 20180902

REACTIONS (2)
  - Condition aggravated [Unknown]
  - Drug ineffective [Unknown]
